FAERS Safety Report 9482704 (Version 3)
Quarter: 2013Q3

REPORT INFORMATION
  Report Type: Report from Study
  Country: GB (occurrence: GB)
  Receive Date: 20130828
  Receipt Date: 20130903
  Transmission Date: 20140515
  Serious: Yes (Other)
  Sender: FDA-Public Use
  Company Number: GB-B.I. PHARMACEUTICALS,INC./RIDGEFIELD-2013-UK-01590UK

PATIENT
  Sex: Female

DRUGS (9)
  1. PRADAXA [Suspect]
     Indication: ATRIAL FIBRILLATION
     Dosage: 300 MG
     Route: 048
     Dates: start: 20130417, end: 20130812
  2. CO-AMILOZIDE [Concomitant]
     Indication: CARDIAC FAILURE
     Route: 048
  3. CO-AMILOZIDE [Concomitant]
     Indication: HYPERTENSION
  4. CO-AMILOZIDE [Concomitant]
     Indication: FLUID RETENTION
  5. FLECAINIDE ACETATE [Concomitant]
     Indication: HEART RATE ABNORMAL
     Route: 048
  6. TILDIEM [Concomitant]
     Indication: ANGINA PECTORIS
     Route: 048
  7. SIMVASTATIN [Concomitant]
     Indication: BLOOD CHOLESTEROL ABNORMAL
     Route: 048
  8. PULMICORT [AND VENTOLIN] [Concomitant]
     Indication: ASTHMA
     Route: 055
  9. [PULMICORT AND] VENTOLIN [Concomitant]
     Indication: ASTHMA
     Route: 055

REACTIONS (7)
  - Movement disorder [Not Recovered/Not Resolved]
  - Dystonia [Not Recovered/Not Resolved]
  - Arthritis [Not Recovered/Not Resolved]
  - Cardiac disorder [Unknown]
  - Joint swelling [Not Recovered/Not Resolved]
  - Musculoskeletal stiffness [Not Recovered/Not Resolved]
  - Movement disorder [Not Recovered/Not Resolved]
